FAERS Safety Report 5279451-1 (Version None)
Quarter: 2007Q1

REPORT INFORMATION
  Report Type: 
  Country: None (occurrence: None)
  Receive Date: 20070328
  Receipt Date: 20070319
  Transmission Date: 20070707
  Serious: Yes (Other)
  Sender: FDA-Public Use
  Company Number: DE-PFIZER INC-2007021719

PATIENT
  Age: 30 Year
  Sex: Male

DRUGS (1)
  1. ZELDOX (CAPSULES) [Suspect]
     Indication: SCHIZOPHRENIA, PARANOID TYPE
     Dosage: DAILY DOSE:120MG
     Route: 048

REACTIONS (1)
  - PLEUROTHOTONUS [None]
